FAERS Safety Report 11866402 (Version 2)
Quarter: 2017Q2

REPORT INFORMATION
  Report Type: Report from Study
  Country: None (occurrence: GB)
  Receive Date: 20151224
  Receipt Date: 20170411
  Transmission Date: 20170829
  Serious: Yes (Hospitalization)
  Sender: FDA-Public Use
  Company Number: GB-ABBVIE-15K-167-1522064-00

PATIENT
  Age: 45 Year
  Sex: Male
  Weight: 52 kg

DRUGS (5)
  1. OMEPRAZOLE. [Concomitant]
     Active Substance: OMEPRAZOLE
     Indication: PRODUCT USED FOR UNKNOWN INDICATION
     Dates: start: 20030615, end: 20150615
  2. HUMIRA [Suspect]
     Active Substance: ADALIMUMAB
     Indication: PSORIASIS
     Route: 058
     Dates: start: 20121116
  3. BISOPROLOL [Concomitant]
     Active Substance: BISOPROLOL
     Indication: PRODUCT USED FOR UNKNOWN INDICATION
     Dates: start: 20150615
  4. WARFARIN [Concomitant]
     Active Substance: WARFARIN
     Indication: PRODUCT USED FOR UNKNOWN INDICATION
     Dates: start: 20020615
  5. LANZOPRAZOL [Concomitant]
     Active Substance: LANSOPRAZOLE
     Indication: PRODUCT USED FOR UNKNOWN INDICATION
     Dates: start: 20150615

REACTIONS (5)
  - Hydronephrosis [Unknown]
  - Sepsis [Recovered/Resolved with Sequelae]
  - Pyonephrosis [Unknown]
  - Stoma obstruction [Recovered/Resolved with Sequelae]
  - Urinary tract stoma complication [Recovered/Resolved with Sequelae]

NARRATIVE: CASE EVENT DATE: 2015
